FAERS Safety Report 6641640-9 (Version None)
Quarter: 2010Q1

REPORT INFORMATION
  Report Type: 
  Country: None (occurrence: None)
  Receive Date: 20100317
  Receipt Date: 20100317
  Transmission Date: 20100710
  Serious: Yes (Other)
  Sender: FDA-Public Use
  Company Number: None

PATIENT
  Age: 79 Year
  Sex: Female
  Weight: 46 kg

DRUGS (14)
  1. INSULIN ASPART [Suspect]
     Indication: TYPE 1 DIABETES MELLITUS
     Dosage: 2 UNITS ONCE SQ
     Route: 058
     Dates: start: 20100125
  2. HEPARIN [Concomitant]
  3. ASPIRIN [Concomitant]
  4. ASCORBIC ACID [Concomitant]
  5. CACLIUM CARBONATE [Concomitant]
  6. DOCUSATE [Concomitant]
  7. EPOETIN [Concomitant]
  8. EZETIMIDE [Concomitant]
  9. HYDRALAZINE HCL [Concomitant]
  10. LEVETIRACETAM [Concomitant]
  11. RANITIDINE [Concomitant]
  12. SENNA [Concomitant]
  13. ZINC [Concomitant]
  14. TEN [Concomitant]

REACTIONS (3)
  - HYPOGLYCAEMIA [None]
  - HYPOPHAGIA [None]
  - LETHARGY [None]
